FAERS Safety Report 18734207 (Version 1)
Quarter: 2021Q1

REPORT INFORMATION
  Report Type: Spontaneous
  Country: US (occurrence: US)
  Receive Date: 20210112
  Receipt Date: 20210112
  Transmission Date: 20210419
  Serious: Yes (Other)
  Sender: FDA-Public Use
  Company Number: None

PATIENT
  Age: 69 Year
  Sex: Female
  Weight: 69 kg

DRUGS (2)
  1. TACROLIMUS. [Suspect]
     Active Substance: TACROLIMUS
     Dates: start: 20210103, end: 20210112
  2. REMDESIVIR. [Suspect]
     Active Substance: REMDESIVIR
     Indication: COVID-19
     Route: 042
     Dates: start: 20210104, end: 20210108

REACTIONS (1)
  - Toxicity to various agents [None]

NARRATIVE: CASE EVENT DATE: 20210112
